FAERS Safety Report 9766567 (Version 1)
Quarter: 2013Q4

REPORT INFORMATION
  Report Type: Spontaneous
  Country: US (occurrence: US)
  Receive Date: 20131217
  Receipt Date: 20131217
  Transmission Date: 20140711
  Serious: No
  Sender: FDA-Public Use
  Company Number: US-GLAXOSMITHKLINE-A1029093A

PATIENT
  Age: 54 Year
  Sex: Male

DRUGS (5)
  1. VOTRIENT [Suspect]
     Indication: RENAL CANCER
     Dosage: 200MG TWICE PER DAY
     Route: 048
  2. AMLODIPINE [Concomitant]
  3. LISINOPRIL [Concomitant]
  4. MULTI VITAMIN [Concomitant]
  5. VITAMIN D [Concomitant]

REACTIONS (1)
  - Diarrhoea [Unknown]
